FAERS Safety Report 8862669 (Version 2)
Quarter: 2012Q4

REPORT INFORMATION
  Report Type: 
  Country: AU (occurrence: AU)
  Receive Date: 20121026
  Receipt Date: 20121129
  Transmission Date: 20130627
  Serious: Yes (Disabling, Other)
  Sender: FDA-Public Use
  Company Number: AU-PFIZER INC-2012267000

PATIENT
  Age: 24 Year
  Sex: Female
  Weight: 70 kg

DRUGS (5)
  1. PRISTIQ [Suspect]
     Indication: DEPRESSION
     Dosage: 100 mg daily in the morning
     Route: 048
     Dates: start: 201203, end: 2012
  2. PRISTIQ [Suspect]
     Dosage: 200 mg, UNK
     Route: 048
     Dates: start: 2012, end: 2012
  3. PRISTIQ [Suspect]
     Dosage: 100 mg, UNK
     Route: 048
     Dates: start: 2012
  4. TEMAZEPAM [Suspect]
     Indication: INSOMNIA
     Dosage: 10 mg, as needed at night
     Route: 048
  5. LOVAN [Suspect]
     Dosage: UNK

REACTIONS (8)
  - Suicidal ideation [Unknown]
  - Insomnia [Not Recovered/Not Resolved]
  - Sleep disorder [Not Recovered/Not Resolved]
  - Activities of daily living impaired [Not Recovered/Not Resolved]
  - Anxiety [Not Recovered/Not Resolved]
  - Drug withdrawal syndrome [Not Recovered/Not Resolved]
  - Emotional distress [Not Recovered/Not Resolved]
  - Drug ineffective [Not Recovered/Not Resolved]
